FAERS Safety Report 18866255 (Version 1)
Quarter: 2021Q1

REPORT INFORMATION
  Report Type: Spontaneous
  Country: GB (occurrence: GB)
  Receive Date: 20210209
  Receipt Date: 20210209
  Transmission Date: 20210420
  Serious: Yes (Disabling)
  Sender: FDA-Public Use
  Company Number: GB-ACCORD-216567

PATIENT
  Age: 69 Year
  Sex: Male
  Weight: 98 kg

DRUGS (9)
  1. PROPRANOLOL [Concomitant]
     Active Substance: PROPRANOLOL HYDROCHLORIDE
     Dosage: TAKE ONE TWICE A DAY
     Dates: start: 20200711
  2. ATORVASTATIN [Concomitant]
     Active Substance: ATORVASTATIN
     Dosage: TAKE ONE DAILY
     Dates: start: 20200711
  3. LERCANIDIPINE [Concomitant]
     Active Substance: LERCANIDIPINE
     Dosage: TAKE ONE DAILY
     Dates: start: 20200711
  4. ALLOPURINOL. [Suspect]
     Active Substance: ALLOPURINOL
     Indication: PRODUCT USED FOR UNKNOWN INDICATION
     Dates: start: 20201028
  5. ACICLOVIR [Concomitant]
     Active Substance: ACYCLOVIR
     Dosage: ONE TWICE DAILY
     Dates: start: 20200711
  6. COLCHICINE. [Concomitant]
     Active Substance: COLCHICINE
     Dosage: 1 3 *A DAY UNTIL PAIN RESOLVES(USUALLY AROUND...
     Dates: start: 20201103, end: 20201107
  7. NAPROXEN. [Concomitant]
     Active Substance: NAPROXEN
     Dosage: TAKE ONE TWICE DAILY
     Dates: start: 20200711
  8. ASPIRIN. [Concomitant]
     Active Substance: ASPIRIN
     Dosage: TAKE ONE DAILY
     Dates: start: 20200711
  9. LANSOPRAZOLE. [Concomitant]
     Active Substance: LANSOPRAZOLE
     Dosage: TAKE ONE ( OCCASIONALLY TWO)
     Dates: start: 20200711

REACTIONS (3)
  - Oedema peripheral [Unknown]
  - Joint stiffness [Unknown]
  - Arthralgia [Recovering/Resolving]

NARRATIVE: CASE EVENT DATE: 20210126
